FAERS Safety Report 4951165-4 (Version None)
Quarter: 2006Q1

REPORT INFORMATION
  Report Type: 
  Country: None (occurrence: None)
  Receive Date: 20060130
  Receipt Date: 20050224
  Transmission Date: 20060701
  Serious: Yes (Hospitalization)
  Sender: FDA-Public Use
  Company Number: 141457USA

PATIENT
  Age: 58 Year
  Sex: Female

DRUGS (7)
  1. COPAXONE [Suspect]
     Indication: MULTIPLE SCLEROSIS
     Dosage: 20 MILLIGRAM QD SUBCUTANEOUS
     Route: 058
  2. FELDENE [Concomitant]
  3. PREMARIN [Concomitant]
  4. BACLOFEN [Concomitant]
  5. DARVOCET [Concomitant]
  6. PROTONIX [Concomitant]
  7. ELAVIL [Concomitant]

REACTIONS (3)
  - ANOREXIA [None]
  - NAUSEA [None]
  - VOMITING [None]
